FAERS Safety Report 10214116 (Version 2)
Quarter: 2014Q2

REPORT INFORMATION
  Report Type: Spontaneous
  Country: FR (occurrence: FR)
  Receive Date: 20140603
  Receipt Date: 20140603
  Transmission Date: 20141212
  Serious: Yes (Hospitalization, Other)
  Sender: FDA-Public Use
  Company Number: FR-009507513-1404FRA008759

PATIENT
  Sex: Female
  Weight: 87 kg

DRUGS (3)
  1. OLMETEC [Suspect]
     Indication: HYPERTENSION
     Dosage: 40 MG, QD
     Route: 048
     Dates: start: 20070221, end: 20130808
  2. JANUMET [Suspect]
     Indication: GLUCOSE TOLERANCE IMPAIRED
     Dosage: 2000/100 MG, QD
     Route: 048
     Dates: start: 20130617, end: 20130808
  3. VOLTARENE (DICLOFENAC SODIUM) [Concomitant]
     Dosage: UNK
     Route: 065
     Dates: start: 20060913, end: 20130808

REACTIONS (5)
  - Weight decreased [Recovered/Resolved]
  - Dehydration [Recovered/Resolved]
  - Therapeutic response changed [Unknown]
  - Diarrhoea [Recovered/Resolved]
  - Renal failure [Recovered/Resolved]
